FAERS Safety Report 5014446-4 (Version None)
Quarter: 2006Q2

REPORT INFORMATION
  Report Type: 
  Country: None (occurrence: None)
  Receive Date: 20060531
  Receipt Date: 20060517
  Transmission Date: 20061013
  Serious: Yes (Other)
  Sender: FDA-Public Use
  Company Number: PHMT2006CA01235

PATIENT
  Sex: Female

DRUGS (6)
  1. CIMETIDINE [Suspect]
     Dates: start: 20050601
  2. FOSAMAX [Suspect]
     Dates: start: 20050601
  3. CALCIUM GLUCONATE [Suspect]
     Dates: start: 20050601
  4. AMITRIPTYLINE HCL [Suspect]
     Dates: start: 20060301
  5. SOTALOL HCL [Suspect]
     Dates: start: 20060301
  6. FEMARA [Suspect]
     Indication: BREAST CANCER
     Route: 048
     Dates: start: 20050601

REACTIONS (4)
  - ARRHYTHMIA [None]
  - ATRIAL FIBRILLATION [None]
  - DRUG INTERACTION [None]
  - ELECTROCARDIOGRAM QT PROLONGED [None]
